FAERS Safety Report 5520815-6 (Version None)
Quarter: 2007Q4

REPORT INFORMATION
  Report Type: 
  Country: None (occurrence: None)
  Receive Date: 20071119
  Receipt Date: 20071112
  Transmission Date: 20080405
  Serious: Yes (Other)
  Sender: FDA-Public Use
  Company Number: B0495901A

PATIENT
  Age: 48 Year
  Sex: Female

DRUGS (1)
  1. NIQUITIN CQ PATCH [Suspect]
     Dosage: 21MG THREE TIMES PER DAY
     Route: 062

REACTIONS (4)
  - DRUG INEFFECTIVE [None]
  - INTENTIONAL DRUG MISUSE [None]
  - OBSESSIVE THOUGHTS [None]
  - VOMITING [None]
